FAERS Safety Report 12858422 (Version 2)
Quarter: 2016Q4

REPORT INFORMATION
  Report Type: Spontaneous
  Country: US (occurrence: US)
  Receive Date: 20161018
  Receipt Date: 20161109
  Transmission Date: 20170207
  Serious: Yes (Life-Threatening, Hospitalization, Other)
  Sender: FDA-Public Use
  Company Number: US-SAOL THERAPEUTICS-2016SAO00822

PATIENT
  Age: 49 Year
  Sex: Male

DRUGS (16)
  1. BACLOFEN. [Suspect]
     Active Substance: BACLOFEN
     Indication: MUSCLE SPASTICITY
     Dosage: 970 ?G, \DAY
     Route: 037
     Dates: start: 20160630, end: 20160922
  2. MEPERIDINE [Suspect]
     Active Substance: MEPERIDINE
     Dosage: 138.62 ?G, \DAY
     Route: 037
     Dates: start: 20160630, end: 20160922
  3. MEPERIDINE [Suspect]
     Active Substance: MEPERIDINE
     Dosage: 129.11 ?G, \DAY
     Route: 037
     Dates: start: 20160922
  4. CLONIDINE. [Suspect]
     Active Substance: CLONIDINE
     Dosage: 3198.5 ?G, \DAY
     Route: 037
     Dates: start: 20160630, end: 20160922
  5. BACLOFEN. [Suspect]
     Active Substance: BACLOFEN
     Indication: SPINAL CORD INJURY
     Dosage: 1399.9 ?G, \DAY
     Route: 037
     Dates: start: 20160630, end: 20160922
  6. FENTANYL. [Suspect]
     Active Substance: FENTANYL
     Dosage: 3099 ?G, \DAY
     Route: 037
     Dates: start: 20160922
  7. CLONIDINE. [Suspect]
     Active Substance: CLONIDINE
     Dosage: 2720.3 ?G, \DAY
     Route: 037
     Dates: start: 20160922
  8. BACLOFEN. [Suspect]
     Active Substance: BACLOFEN
     Dosage: 903.8 ?G, \DAY
     Route: 037
     Dates: start: 20160922
  9. FENTANYL. [Suspect]
     Active Substance: FENTANYL
     Dosage: 4081 ?G, \DAY
     Route: 037
     Dates: start: 20160922
  10. CLONIDINE. [Suspect]
     Active Substance: CLONIDINE
     Dosage: 2218 ?G, \DAY
     Route: 037
     Dates: start: 20160630, end: 20160922
  11. MEPERIDINE [Suspect]
     Active Substance: MEPERIDINE
     Dosage: 170.02 ?G, \DAY
     Route: 037
     Dates: start: 20160922
  12. FENTANYL. [Suspect]
     Active Substance: FENTANYL
     Dosage: 3327 ?G, \DAY
     Route: 037
     Dates: start: 20160630, end: 20160922
  13. FENTANYL. [Suspect]
     Active Substance: FENTANYL
     Dosage: 4789 ?G, \DAY
     Route: 037
     Dates: start: 20160630, end: 20160922
  14. CLONIDINE. [Suspect]
     Active Substance: CLONIDINE
     Dosage: 2065.8 ?G, \DAY
     Route: 037
     Dates: start: 20160922
  15. MEPERIDINE [Suspect]
     Active Substance: MEPERIDINE
     Dosage: 199.91 ?G, \DAY
     Route: 037
     Dates: start: 20160630, end: 20160922
  16. BACLOFEN. [Suspect]
     Active Substance: BACLOFEN
     Dosage: 1190.2 ?G, \DAY
     Route: 037
     Dates: start: 20160922

REACTIONS (5)
  - Respiratory arrest [Recovered/Resolved]
  - Overdose [Recovered/Resolved]
  - Device infusion issue [Unknown]
  - Device malfunction [Recovered/Resolved]
  - Device damage [Unknown]

NARRATIVE: CASE EVENT DATE: 20160922
